FAERS Safety Report 9611973 (Version 1)
Quarter: 2013Q4

REPORT INFORMATION
  Report Type: Report from Study
  Country: CA (occurrence: CA)
  Receive Date: 20131010
  Receipt Date: 20131010
  Transmission Date: 20140711
  Serious: Yes (Hospitalization)
  Sender: FDA-Public Use
  Company Number: CA-UCBSA-099230

PATIENT
  Age: 77 Year
  Sex: Female
  Weight: 54 kg

DRUGS (6)
  1. CIMZIA [Suspect]
     Indication: RHEUMATOID ARTHRITIS
     Route: 058
     Dates: start: 20130812, end: 201309
  2. CIMZIA [Suspect]
     Indication: RHEUMATOID ARTHRITIS
     Dosage: Q2W X 3
     Route: 058
     Dates: start: 20130624, end: 20130722
  3. METHOTREXATE [Suspect]
     Indication: RHEUMATOID ARTHRITIS
     Dosage: WEEKLY
     Route: 048
     Dates: start: 201003
  4. SULFASALAZINE [Concomitant]
     Indication: RHEUMATOID ARTHRITIS
     Route: 048
     Dates: start: 201211
  5. COVERSYL [Concomitant]
     Indication: HYPERTENSION
     Dosage: DAILY
     Route: 048
  6. ROCALTROL [Concomitant]
     Indication: OSTEOPOROSIS

REACTIONS (1)
  - Arthritis infective [Recovering/Resolving]
